FAERS Safety Report 6533706-9 (Version None)
Quarter: 2010Q1

REPORT INFORMATION
  Report Type: 
  Country: None (occurrence: None)
  Receive Date: 20100111
  Receipt Date: 20100106
  Transmission Date: 20100710
  Serious: Yes (Death)
  Sender: FDA-Public Use
  Company Number: CA-ABBOTT-10P-026-0618224-00

PATIENT
  Sex: Male
  Weight: 69.008 kg

DRUGS (15)
  1. LUPRON DEPOT [Suspect]
     Indication: PROSTATE CANCER
     Dates: start: 20090515, end: 20090910
  2. CRESTOR [Concomitant]
     Indication: DRUG USE FOR UNKNOWN INDICATION
  3. NOVO-PREDNISONE [Concomitant]
     Indication: DRUG USE FOR UNKNOWN INDICATION
  4. CELEBREX [Concomitant]
     Indication: DRUG USE FOR UNKNOWN INDICATION
  5. NOVO-ZOPICLONE [Concomitant]
     Indication: DRUG USE FOR UNKNOWN INDICATION
  6. VIT B12 [Concomitant]
     Indication: DRUG USE FOR UNKNOWN INDICATION
  7. APO-METHOTREXATE [Concomitant]
     Indication: DRUG USE FOR UNKNOWN INDICATION
     Dosage: 2.5MG X 8 TABLETS WEEKLY
  8. RAN-PANTOPRAZOLE [Concomitant]
     Indication: DRUG USE FOR UNKNOWN INDICATION
  9. PMS PROCHLORPERAZINE [Concomitant]
     Indication: NAUSEA
  10. PMS PROCHLORPERAZINE [Concomitant]
     Indication: VOMITING
     Dosage: SUPP AS REQUIRED
  11. CALCITE 500+D400 [Concomitant]
     Indication: DRUG USE FOR UNKNOWN INDICATION
  12. APO ACETAMINOPHEN [Concomitant]
     Indication: DRUG USE FOR UNKNOWN INDICATION
     Dosage: 500MG X 2 TABLETS EVERY 6 HOURS AS REQUIRED
  13. ATIVAN [Concomitant]
     Indication: DRUG USE FOR UNKNOWN INDICATION
     Dosage: 1MG TWICE DAILY AS REQUIRED
  14. STATEX [Concomitant]
     Indication: PAIN
     Dosage: 1/2 TABLETS EVERY HOURS AS REQUIRED
  15. FRAGMIN [Concomitant]
     Indication: DRUG USE FOR UNKNOWN INDICATION
     Dosage: 15,000 UI INJECTION DAILY FOR 6 MONTHS
     Route: 058
     Dates: start: 20090513, end: 20091101

REACTIONS (1)
  - LUNG NEOPLASM MALIGNANT [None]
